FAERS Safety Report 15410066 (Version 1)
Quarter: 2018Q3

REPORT INFORMATION
  Report Type: Spontaneous
  Country: US (occurrence: US)
  Receive Date: 20180913
  Receipt Date: 20180913
  Transmission Date: 20181010
  Serious: Yes (Hospitalization)
  Sender: FDA-Public Use
  Company Number: None

PATIENT
  Age: 1 Year
  Sex: Male

DRUGS (24)
  1. REMODULIN [Concomitant]
     Active Substance: TREPROSTINIL
  2. FERROUS SULFATE. [Concomitant]
     Active Substance: FERROUS SULFATE
  3. FAMOTIDINE. [Concomitant]
     Active Substance: FAMOTIDINE
  4. NYSTATIN TOP CREAM [Concomitant]
  5. TOBRAMYCIN INHL NEB SOLN [Concomitant]
  6. POTASSIUM CHLORIDE. [Concomitant]
     Active Substance: POTASSIUM CHLORIDE
  7. ALBUTEROL INHL NEB SOLN [Concomitant]
     Active Substance: ALBUTEROL
  8. PULMICORT TURBUHALER [Concomitant]
     Active Substance: BUDESONIDE
  9. SPIRONOLACTONE. [Concomitant]
     Active Substance: SPIRONOLACTONE
  10. MUPIROCIN TOP OINT [Concomitant]
  11. TRACLEER [Suspect]
     Active Substance: BOSENTAN
     Indication: PULMONARY ARTERIAL HYPERTENSION
     Route: 048
     Dates: start: 201803
  12. SILDENAFIL. [Concomitant]
     Active Substance: SILDENAFIL
  13. IBUPROFEN. [Concomitant]
     Active Substance: IBUPROFEN
  14. MIRALAX [Concomitant]
     Active Substance: POLYETHYLENE GLYCOL 3350
  15. FUROSEMIDE. [Concomitant]
     Active Substance: FUROSEMIDE
  16. IPRATROPIUM INHL SOLN [Concomitant]
  17. SODIUM CHLORIDE. [Concomitant]
     Active Substance: SODIUM CHLORIDE
  18. SIMETHICONE (DIMETHICONE) [Concomitant]
     Active Substance: DIMETHICONE
  19. MELATONIN [Concomitant]
     Active Substance: MELATONIN
  20. ACETAMINOPHEN. [Concomitant]
     Active Substance: ACETAMINOPHEN
  21. CHLOROTHIAZIDE. [Concomitant]
     Active Substance: CHLOROTHIAZIDE
  22. LEVOFLOXACIN. [Concomitant]
     Active Substance: LEVOFLOXACIN
  23. TRIAMCINOLONE TOP CREAM [Concomitant]
  24. VITAMIN D3 [Concomitant]
     Active Substance: CHOLECALCIFEROL

REACTIONS (4)
  - Acute respiratory failure [None]
  - Pneumonia [None]
  - Bronchopulmonary dysplasia [None]
  - Tracheitis [None]

NARRATIVE: CASE EVENT DATE: 20180710
